FAERS Safety Report 9393656 (Version 1)
Quarter: 2013Q3

REPORT INFORMATION
  Report Type: Spontaneous
  Country: FR (occurrence: FR)
  Receive Date: 20130710
  Receipt Date: 20130710
  Transmission Date: 20140515
  Serious: Yes (Hospitalization)
  Sender: FDA-Public Use
  Company Number: FR-GLAXOSMITHKLINE-B0905242A

PATIENT
  Age: 60 Year
  Sex: Female

DRUGS (5)
  1. ZOPHREN [Suspect]
     Indication: PREMEDICATION
     Dosage: 8MG CYCLIC
     Route: 042
     Dates: start: 20130528, end: 20130528
  2. OXALIPLATINE [Suspect]
     Indication: COLON NEOPLASM
     Dosage: 130MG CYCLIC
     Route: 042
     Dates: start: 20130528, end: 20130528
  3. VECTIBIX [Suspect]
     Indication: COLON NEOPLASM
     Dosage: 395MG CYCLIC
     Route: 042
     Dates: start: 20130528, end: 20130528
  4. CALCIUM FOLINATE [Concomitant]
     Indication: COLON NEOPLASM
     Dosage: 660MG CYCLIC
     Route: 042
     Dates: start: 20130528, end: 20130528
  5. SOLUMEDROL [Concomitant]
     Indication: PREMEDICATION
     Dosage: 80MG CYCLIC
     Route: 042
     Dates: start: 20130528, end: 20130528

REACTIONS (6)
  - Hypersensitivity [Recovered/Resolved]
  - Respiratory distress [Recovered/Resolved]
  - Urticaria [Recovered/Resolved]
  - Erythema [Recovered/Resolved]
  - Bronchospasm [Recovered/Resolved]
  - Pruritus [Recovered/Resolved]
